FAERS Safety Report 25236411 (Version 3)
Quarter: 2025Q2

REPORT INFORMATION
  Report Type: Report from Study
  Country: FR (occurrence: FR)
  Receive Date: 20250424
  Receipt Date: 20250620
  Transmission Date: 20250717
  Serious: Yes (Other)
  Sender: NOVARTIS
  Company Number: None

PATIENT
  Age: 0 Year
  Sex: Female

DRUGS (3)
  1. VIJOICE [Suspect]
     Active Substance: ALPELISIB
     Indication: Foetal exposure during pregnancy
     Route: 064
  2. PROPRANOLOL [Suspect]
     Active Substance: PROPRANOLOL HYDROCHLORIDE
     Indication: Foetal exposure during pregnancy
     Dosage: MATERNAL EXPOSURE DURING PREGNANCY, SECOND AND THIRD TRIMESTER (40 MG, QD)
     Route: 064
     Dates: start: 202412, end: 20250224
  3. FOLIC ACID [Concomitant]
     Active Substance: FOLIC ACID
     Indication: Supplementation therapy
     Route: 064

REACTIONS (10)
  - Premature baby [Unknown]
  - Neonatal respiratory distress syndrome [Unknown]
  - Infantile apnoea [Unknown]
  - Foetal exposure during pregnancy [Unknown]
  - Hypernatraemia [Recovering/Resolving]
  - Hypophosphataemia [Recovering/Resolving]
  - Low birth weight baby [Unknown]
  - Dehydration [Recovering/Resolving]
  - Blood creatinine increased [Recovered/Resolved]
  - Jaundice neonatal [Unknown]

NARRATIVE: CASE EVENT DATE: 20250224
